FAERS Safety Report 14634165 (Version 1)
Quarter: 2018Q1

REPORT INFORMATION
  Report Type: Spontaneous
  Country: US (occurrence: US)
  Receive Date: 20180314
  Receipt Date: 20180314
  Transmission Date: 20180509
  Serious: No
  Sender: FDA-Public Use
  Company Number: US-009507513-1802USA006394

PATIENT
  Age: 25 Year
  Sex: Female
  Weight: 142.4 kg

DRUGS (2)
  1. NEXPLANON [Suspect]
     Active Substance: ETONOGESTREL
     Indication: CONTRACEPTION
     Dosage: 1 IMPLANT EVERY 3 YEARS
     Route: 059
     Dates: start: 201604, end: 20180208
  2. IRON (UNSPECIFIED) [Concomitant]
     Active Substance: IRON

REACTIONS (4)
  - Complication of device removal [Recovered/Resolved]
  - Device breakage [Recovered/Resolved]
  - Device kink [Recovered/Resolved]
  - Weight increased [Unknown]

NARRATIVE: CASE EVENT DATE: 20180201
